FAERS Safety Report 4687756-8 (Version None)
Quarter: 2005Q2

REPORT INFORMATION
  Report Type: 
  Country: None (occurrence: None)
  Receive Date: 20050610
  Receipt Date: 20050311
  Transmission Date: 20051028
  Serious: Yes (Hospitalization)
  Sender: FDA-Public Use
  Company Number: US-MERCK-0503USA02584

PATIENT
  Age: 53 Year
  Sex: Male
  Weight: 70 kg

DRUGS (3)
  1. VIOXX [Suspect]
     Indication: ARTHRITIS
     Route: 048
     Dates: start: 20010314, end: 20040815
  2. PREVACID [Concomitant]
     Route: 065
  3. NEXIUM [Concomitant]
     Route: 065

REACTIONS (8)
  - ATHEROSCLEROSIS [None]
  - CAROTID ARTERY STENOSIS [None]
  - CEREBROVASCULAR ACCIDENT [None]
  - CHRONIC OBSTRUCTIVE PULMONARY DISEASE [None]
  - EMOTIONAL DISTRESS [None]
  - HAEMORRHAGIC STROKE [None]
  - MULTIPLE SCLEROSIS [None]
  - TRANSIENT ISCHAEMIC ATTACK [None]
